FAERS Safety Report 8553269-6 (Version None)
Quarter: 2012Q3

REPORT INFORMATION
  Report Type: 
  Country: None (occurrence: None)
  Receive Date: 20120731
  Receipt Date: 20120720
  Transmission Date: 20120928
  Serious: Yes (Hospitalization)
  Sender: FDA-Public Use
  Company Number: US-BAYER-2012-073686

PATIENT
  Age: 23 Year
  Sex: Female
  Weight: 144 kg

DRUGS (17)
  1. YASMIN [Suspect]
  2. CEFUROXIME [Concomitant]
     Dosage: 500 MG, BID
     Dates: start: 20070416
  3. YAZ [Suspect]
  4. LEXAPRO [Concomitant]
     Dosage: 10 MG, DAILY
     Route: 048
     Dates: start: 20070406
  5. AZITHROMYCIN [Concomitant]
     Dosage: 250 MG, 2 TABLETS ON FIRST DAY, THE 2 DAILY
     Dates: start: 20070516
  6. KEFLEX [Concomitant]
  7. ZYRTEC [Concomitant]
     Dosage: 10 MG,DAILY
     Route: 048
     Dates: start: 20070406
  8. HYDROCODONE BITARTRATE AND ACETAMINOPHEN [Concomitant]
     Dosage: 5MG/500 MG
     Dates: start: 20070607
  9. PRILOSEC [Concomitant]
     Dosage: 40 MG,DAILY
     Route: 048
  10. AMOXICILLIN [Concomitant]
  11. NAPROXEN SODIUM W/PSEUDOEPHEDRINE HCL [Concomitant]
     Dosage: 500 MG, UNK
     Dates: start: 20070406
  12. CIPROFLAXACIN [Concomitant]
     Dosage: 500 MG, BID FOR 10 DAYS
     Dates: start: 20070607
  13. IBUPROFEN [Concomitant]
  14. CARISOPRODOL [Concomitant]
     Dosage: 350 MG, TID
  15. AMOXICILLIN AND CLAVULANATE POTASSIUM [Concomitant]
     Dosage: 875 MG, BID FOR 7 DAYS
     Dates: start: 20070612
  16. TYLENOL W/ CODEINE NO. 3 [Concomitant]
  17. PHENAZOPYRIDINE HCL TAB [Concomitant]
     Dosage: 200 MG, TID FOR 3 DAYS
     Dates: start: 20070607

REACTIONS (1)
  - THROMBOPHLEBITIS SUPERFICIAL [None]
